FAERS Safety Report 23629153 (Version 8)
Quarter: 2024Q4

REPORT INFORMATION
  Report Type: Spontaneous
  Country: US (occurrence: US)
  Receive Date: 20240313
  Receipt Date: 20241017
  Transmission Date: 20250114
  Serious: Yes (Other)
  Sender: BLUEPRINT MEDICINES
  Company Number: US-Blueprint Medicines Corporation-2699

PATIENT
  Age: 65 Year
  Sex: Male

DRUGS (13)
  1. AYVAKIT [Suspect]
     Active Substance: AVAPRITINIB
     Indication: Prostate cancer
     Route: 048
     Dates: start: 20230127
  2. AYVAKIT [Suspect]
     Active Substance: AVAPRITINIB
     Indication: Gastrointestinal stromal tumour
     Route: 048
     Dates: start: 20230127
  3. AYVAKIT [Suspect]
     Active Substance: AVAPRITINIB
     Route: 048
     Dates: start: 20230127
  4. AYVAKIT [Suspect]
     Active Substance: AVAPRITINIB
     Route: 065
  5. AYVAKIT [Suspect]
     Active Substance: AVAPRITINIB
     Route: 065
  6. AYVAKIT [Suspect]
     Active Substance: AVAPRITINIB
     Route: 065
  7. DUTASTERIDE [Concomitant]
     Active Substance: DUTASTERIDE
     Indication: Product used for unknown indication
     Route: 065
  8. GLYCOPYRROLATE [Concomitant]
     Active Substance: GLYCOPYRROLATE
     Indication: Product used for unknown indication
     Route: 065
  9. LORAZEPAM [Concomitant]
     Active Substance: LORAZEPAM
     Indication: Product used for unknown indication
     Route: 065
  10. NADOLOL [Concomitant]
     Active Substance: NADOLOL
     Indication: Product used for unknown indication
     Route: 065
  11. TIZANIDINE [Concomitant]
     Active Substance: TIZANIDINE
     Indication: Product used for unknown indication
     Route: 065
  12. ZOFRAN [Concomitant]
     Active Substance: ONDANSETRON HYDROCHLORIDE
     Indication: Product used for unknown indication
     Route: 065
  13. ZOLPIDEM [Concomitant]
     Active Substance: ZOLPIDEM TARTRATE
     Indication: Product used for unknown indication
     Route: 065

REACTIONS (19)
  - Foreign body in throat [Unknown]
  - Head discomfort [Not Recovered/Not Resolved]
  - Unevaluable event [Not Recovered/Not Resolved]
  - Dry throat [Not Recovered/Not Resolved]
  - Headache [Recovered/Resolved]
  - Nasal congestion [Not Recovered/Not Resolved]
  - Memory impairment [Not Recovered/Not Resolved]
  - Amnesia [Unknown]
  - Diarrhoea [Not Recovered/Not Resolved]
  - Sleep disorder [Not Recovered/Not Resolved]
  - Insomnia [Unknown]
  - Dysphagia [Unknown]
  - Spinal disorder [Not Recovered/Not Resolved]
  - Neck pain [Not Recovered/Not Resolved]
  - Otorrhoea [Not Recovered/Not Resolved]
  - Back pain [Unknown]
  - Off label use [Unknown]
  - Wrong technique in product usage process [Unknown]
  - Product use complaint [Unknown]

NARRATIVE: CASE EVENT DATE: 20240801
